FAERS Safety Report 4938754-8 (Version None)
Quarter: 2006Q1

REPORT INFORMATION
  Report Type: 
  Country: None (occurrence: None)
  Receive Date: 20060306
  Receipt Date: 20060224
  Transmission Date: 20060701
  Serious: Yes (Other)
  Sender: FDA-Public Use
  Company Number: 2006028077

PATIENT
  Age: 62 Year
  Sex: Male

DRUGS (6)
  1. CELEBREX [Suspect]
     Indication: ARTHRITIS
     Dosage: UNKNOWN (1 IN 1 D), ORAL
     Route: 048
  2. ALL OTHER THERAPEUTIC PRODUCTS (ALL OTHER THERAPEUTIC PRODUCTS) [Concomitant]
  3. ANTIHYPERTENSIVES (ANTIHYPERTENSIVES) [Concomitant]
  4. DIURETICS (DIURETICS) [Concomitant]
  5. REQUIP [Concomitant]
  6. ALL OTHER THERAPEUTIC PRODUCTS (ALL OTHER THERAPEUTIC PRODUCTS) [Concomitant]

REACTIONS (5)
  - HYPOAESTHESIA [None]
  - INFLAMMATION [None]
  - KNEE ARTHROPLASTY [None]
  - MUSCULOSKELETAL STIFFNESS [None]
  - URTICARIA [None]
